FAERS Safety Report 6038684-7 (Version None)
Quarter: 2009Q1

REPORT INFORMATION
  Report Type: 
  Country: None (occurrence: None)
  Receive Date: 20090115
  Receipt Date: 20090106
  Transmission Date: 20090719
  Serious: Yes (Other)
  Sender: FDA-Public Use
  Company Number: US-JNJFOC-20090100898

PATIENT
  Sex: Female
  Weight: 57.15 kg

DRUGS (5)
  1. REMICADE [Suspect]
     Route: 042
  2. REMICADE [Suspect]
     Indication: RHEUMATOID ARTHRITIS
     Route: 042
  3. MAXZIDE [Concomitant]
  4. LEVOTHYROXINE SODIUM [Concomitant]
  5. NEXIUM [Concomitant]

REACTIONS (5)
  - CONDITION AGGRAVATED [None]
  - FRACTURED SACRUM [None]
  - INFUSION RELATED REACTION [None]
  - PRURITUS [None]
  - RHEUMATOID ARTHRITIS [None]
